FAERS Safety Report 16463664 (Version 2)
Quarter: 2019Q2

REPORT INFORMATION
  Report Type: Spontaneous
  Country: GB (occurrence: GB)
  Receive Date: 20190621
  Receipt Date: 20190626
  Transmission Date: 20190711
  Serious: Yes (Other)
  Sender: FDA-Public Use
  Company Number: GB-PFIZER INC-2019262312

PATIENT
  Age: 38 Year
  Sex: Female

DRUGS (4)
  1. DEPO-PROVERA [Suspect]
     Active Substance: MEDROXYPROGESTERONE ACETATE
     Dosage: 150 MG
     Dates: start: 20181115, end: 20181115
  2. DEPO-PROVERA [Suspect]
     Active Substance: MEDROXYPROGESTERONE ACETATE
     Indication: CONTRACEPTION
     Dosage: 150 MG/ 1ML
     Dates: start: 20180823, end: 20180823
  3. DEPO-PROVERA [Suspect]
     Active Substance: MEDROXYPROGESTERONE ACETATE
     Dosage: UNK
     Dates: start: 20190501, end: 20190501
  4. DEPO-PROVERA [Suspect]
     Active Substance: MEDROXYPROGESTERONE ACETATE
     Dosage: 150 MG / 1ML, UNK
     Dates: start: 20190207, end: 20190207

REACTIONS (4)
  - Headache [Not Recovered/Not Resolved]
  - Cerebral haemangioma [Unknown]
  - Neoplasm malignant [Unknown]
  - Meningioma [Unknown]

NARRATIVE: CASE EVENT DATE: 201812
